FAERS Safety Report 25385005 (Version 1)
Quarter: 2025Q2

REPORT INFORMATION
  Report Type: Report from Study
  Country: US (occurrence: US)
  Receive Date: 20250602
  Receipt Date: 20250602
  Transmission Date: 20250717
  Serious: Yes (Death)
  Sender: ACADIA PHARMACEUTICALS
  Company Number: US-ACADIA PHARMACEUTICALS INC.-ACA-2025-PIM-006373

PATIENT
  Sex: Female

DRUGS (5)
  1. NUPLAZID [Suspect]
     Active Substance: PIMAVANSERIN TARTRATE
     Indication: Cognitive disorder
     Dosage: 34 MILLIGRAM, QD
     Route: 048
     Dates: start: 20250205
  2. NUPLAZID [Suspect]
     Active Substance: PIMAVANSERIN TARTRATE
     Indication: Dementia with Lewy bodies
  3. CALCIUM [Concomitant]
     Active Substance: CALCIUM
  4. METHOTREXATE [Concomitant]
     Active Substance: METHOTREXATE
  5. CHOLECALCIFEROL [Concomitant]
     Active Substance: CHOLECALCIFEROL

REACTIONS (3)
  - Head injury [Fatal]
  - Fall [Fatal]
  - Product use in unapproved indication [Recovered/Resolved]
